FAERS Safety Report 7366317-6 (Version None)
Quarter: 2011Q1

REPORT INFORMATION
  Report Type: 
  Country: None (occurrence: None)
  Receive Date: 20110225
  Receipt Date: 20110113
  Transmission Date: 20110831
  Serious: Yes (Other)
  Sender: FDA-Public Use
  Company Number: 318904

PATIENT
  Age: 53 Year
  Sex: Male
  Weight: 207.7 kg

DRUGS (13)
  1. POTASSIUM (POTASSIUM) [Concomitant]
  2. VIAGRA [Concomitant]
  3. METFORMIN HCL [Concomitant]
  4. CARVEDILOL [Concomitant]
  5. LANTUS [Concomitant]
  6. CRESTOR [Concomitant]
  7. VICTOZA [Suspect]
     Indication: TYPE 2 DIABETES MELLITUS
     Dosage: 0.6 MG, QD, SUBCUTANEOUS, 1.2 MG, QD, SUBCUTANEOUS, 1.8 MG, QD, SUBCUTANEOUS
     Route: 058
     Dates: start: 20100825, end: 20101116
  8. VICTOZA [Suspect]
     Indication: TYPE 2 DIABETES MELLITUS
     Dosage: 0.6 MG, QD, SUBCUTANEOUS, 1.2 MG, QD, SUBCUTANEOUS, 1.8 MG, QD, SUBCUTANEOUS
     Route: 058
     Dates: start: 20100817, end: 20100824
  9. VICTOZA [Suspect]
     Indication: TYPE 2 DIABETES MELLITUS
     Dosage: 0.6 MG, QD, SUBCUTANEOUS, 1.2 MG, QD, SUBCUTANEOUS, 1.8 MG, QD, SUBCUTANEOUS
     Route: 058
     Dates: start: 20100809, end: 20100816
  10. HYDROCHLOROTHIAZIDE [Concomitant]
  11. LISINOPRIL [Concomitant]
  12. XIBROM (BROMFENAC SODIUM) [Concomitant]
  13. NIFEDIPINE [Concomitant]

REACTIONS (1)
  - PANCREATITIS ACUTE [None]
